FAERS Safety Report 21594338 (Version 2)
Quarter: 2023Q1

REPORT INFORMATION
  Report Type: Spontaneous
  Country: US (occurrence: None)
  Receive Date: 20221115
  Receipt Date: 20230321
  Transmission Date: 20230418
  Serious: Yes (Other)
  Sender: FDA-Public Use
  Company Number: US-ROCHE-3145794

PATIENT
  Age: 100 Year
  Sex: Female

DRUGS (4)
  1. VABYSMO [Suspect]
     Active Substance: FARICIMAB-SVOA
     Indication: Product used for unknown indication
     Dosage: ONGOING: UNKNOWN
     Route: 050
     Dates: start: 20220415
  2. VABYSMO [Suspect]
     Active Substance: FARICIMAB-SVOA
     Dosage: ONGOING: UNKNOWN
     Route: 050
     Dates: start: 202205
  3. VABYSMO [Suspect]
     Active Substance: FARICIMAB-SVOA
     Dosage: ONGOING: UNKNOWN
     Route: 050
     Dates: start: 20220610
  4. EYLEA [Concomitant]
     Active Substance: AFLIBERCEPT
     Dates: start: 202107

REACTIONS (7)
  - Vitritis [Recovering/Resolving]
  - Anterior chamber inflammation [Recovering/Resolving]
  - Endophthalmitis [Recovering/Resolving]
  - Eye pain [Recovering/Resolving]
  - Eye discharge [Recovering/Resolving]
  - Keratic precipitates [Not Recovered/Not Resolved]
  - Immune-mediated adverse reaction [Recovering/Resolving]

NARRATIVE: CASE EVENT DATE: 20220611
